FAERS Safety Report 8216448-3 (Version None)
Quarter: 2012Q1

REPORT INFORMATION
  Report Type: 
  Country: None (occurrence: None)
  Receive Date: 20120316
  Receipt Date: 20120315
  Transmission Date: 20120608
  Serious: Yes (Other)
  Sender: FDA-Public Use
  Company Number: PHHY2012NZ019965

PATIENT
  Sex: Male

DRUGS (2)
  1. CLOZARIL [Suspect]
     Dates: start: 20120308, end: 20120315
  2. CLOZARIL [Suspect]
     Indication: SCHIZOPHRENIA
     Dates: start: 20111215, end: 20111228

REACTIONS (3)
  - MYOCARDITIS [None]
  - TACHYCARDIA [None]
  - TROPONIN T INCREASED [None]
